FAERS Safety Report 6342849-4 (Version None)
Quarter: 2009Q3

REPORT INFORMATION
  Report Type: 
  Country: None (occurrence: None)
  Receive Date: 20090908
  Receipt Date: 20090824
  Transmission Date: 20100115
  Serious: Yes (Hospitalization)
  Sender: FDA-Public Use
  Company Number: CN-ROCHE-652219

PATIENT
  Age: 54 Year
  Sex: Male

DRUGS (7)
  1. CELLCEPT [Interacting]
     Indication: IMMUNOSUPPRESSION
     Route: 048
     Dates: start: 20040730, end: 20080419
  2. CELLCEPT [Interacting]
     Route: 048
     Dates: start: 20080420, end: 20080504
  3. CELLCEPT [Interacting]
     Route: 048
     Dates: start: 20080101
  4. CYCLOSPORINE [Suspect]
     Indication: IMMUNOSUPPRESSION
     Route: 048
     Dates: start: 20040730, end: 20080504
  5. CYCLOSPORINE [Suspect]
     Route: 048
     Dates: start: 20080101
  6. PREDNISONE TAB [Suspect]
     Indication: IMMUNOSUPPRESSION
     Route: 048
     Dates: start: 20040730, end: 20080504
  7. AZATHIOPRINE [Interacting]
     Indication: IMMUNOSUPPRESSION
     Route: 048
     Dates: start: 20080420, end: 20080504

REACTIONS (7)
  - COMA [None]
  - DRUG INTERACTION [None]
  - GRANULOCYTOPENIA [None]
  - HAEMOGLOBIN DECREASED [None]
  - PLATELET COUNT DECREASED [None]
  - POST PROCEDURAL INFECTION [None]
  - WHITE BLOOD CELL COUNT DECREASED [None]
